FAERS Safety Report 4412917-2 (Version None)
Quarter: 2004Q3

REPORT INFORMATION
  Report Type: 
  Country: None (occurrence: None)
  Receive Date: 20040730
  Receipt Date: 20040716
  Transmission Date: 20050211
  Serious: No
  Sender: FDA-Public Use
  Company Number: 2004SE03546

PATIENT
  Age: 61 Year
  Sex: Male
  Weight: 96 kg

DRUGS (3)
  1. CRESTOR [Suspect]
     Indication: HYPERCHOLESTEROLAEMIA
     Dosage: 10 MG DAILY PO
     Route: 048
     Dates: start: 20030919
  2. DIOVAN HCT [Suspect]
     Indication: HYPERTENSION
     Dosage: ONE DAILY
     Dates: start: 20020919
  3. THYRAX [Concomitant]

REACTIONS (1)
  - GOUT [None]
